FAERS Safety Report 8959960 (Version 2)
Quarter: 2012Q4

REPORT INFORMATION
  Report Type: Report from Study
  Country: DE (occurrence: DE)
  Receive Date: 20121212
  Receipt Date: 20121220
  Transmission Date: 20130627
  Serious: Yes (Other)
  Sender: FDA-Public Use
  Company Number: DE-ROCHE-1165452

PATIENT
  Age: 66 Year
  Sex: Male
  Weight: 73.4 kg

DRUGS (2)
  1. PEG-INTERFERON ALFA 2A [Suspect]
     Indication: HEPATITIS C
     Route: 065
     Dates: start: 20050521, end: 20051027
  2. RIBAVIRIN [Suspect]
     Indication: HEPATITIS C
     Route: 065
     Dates: start: 20050521, end: 20051027

REACTIONS (3)
  - Hepatic failure [Unknown]
  - Ascites [Unknown]
  - Type 2 diabetes mellitus [Unknown]
